FAERS Safety Report 4656778-5 (Version None)
Quarter: 2005Q2

REPORT INFORMATION
  Report Type: 
  Country: None (occurrence: None)
  Receive Date: 20050506
  Receipt Date: 20050428
  Transmission Date: 20051028
  Serious: No
  Sender: FDA-Public Use
  Company Number: 2005PK00757

PATIENT
  Age: 26 Year
  Sex: Female

DRUGS (3)
  1. NOLVADEX [Suspect]
     Indication: INFERTILITY FEMALE
     Dosage: 20 MG DAILY PO
     Route: 048
     Dates: start: 20041201, end: 20041201
  2. TRAMADOL HCL [Suspect]
     Dosage: 100 MG DAILY PO
     Route: 048
     Dates: start: 20041201
  3. SIRDALUD [Suspect]
     Dosage: 2 MG DAILY PO
     Route: 048
     Dates: start: 20041201

REACTIONS (2)
  - CONVULSION [None]
  - SLEEP DISORDER [None]
